FAERS Safety Report 7412945-9 (Version None)
Quarter: 2011Q2

REPORT INFORMATION
  Report Type: 
  Country: None (occurrence: None)
  Receive Date: 20110413
  Receipt Date: 20110329
  Transmission Date: 20111010
  Serious: Yes (Hospitalization)
  Sender: FDA-Public Use
  Company Number: DE-GENENTECH-316265

PATIENT
  Sex: Male
  Weight: 103 kg

DRUGS (3)
  1. FLUDARABINE [Suspect]
     Indication: CHRONIC LYMPHOCYTIC LEUKAEMIA
     Dosage: 5.5 MG, Q4W
     Route: 042
     Dates: start: 20070322, end: 20070620
  2. CYCLOPHOSPHAMIDE [Suspect]
     Indication: CHRONIC LYMPHOCYTIC LEUKAEMIA
     Dosage: 550 MG, Q4W
     Route: 042
     Dates: start: 20070327, end: 20070620
  3. RITUXIMAB [Suspect]
     Indication: CHRONIC LYMPHOCYTIC LEUKAEMIA
     Dosage: 8.3 MG, Q4W
     Route: 042
     Dates: start: 20070326, end: 20070618

REACTIONS (2)
  - PULMONARY EMBOLISM [None]
  - THROMBOSIS [None]
